FAERS Safety Report 22324722 (Version 1)
Quarter: 2023Q2

REPORT INFORMATION
  Report Type: Spontaneous
  Country: CN (occurrence: CN)
  Receive Date: 20230516
  Receipt Date: 20230516
  Transmission Date: 20230722
  Serious: Yes (Disabling, Other)
  Sender: FDA-Public Use
  Company Number: CN-002147023-NVSC2023CN110046

PATIENT
  Age: 60 Year
  Sex: Male
  Weight: 50 kg

DRUGS (1)
  1. VORICONAZOLE [Suspect]
     Active Substance: VORICONAZOLE
     Indication: Antibiotic prophylaxis
     Dosage: 2 G, BID
     Route: 048
     Dates: start: 20230321, end: 20230421

REACTIONS (4)
  - Decreased appetite [Recovering/Resolving]
  - Liver function test abnormal [Recovering/Resolving]
  - Asthenia [Recovering/Resolving]
  - Liver injury [Recovering/Resolving]

NARRATIVE: CASE EVENT DATE: 20230421
